FAERS Safety Report 7366593-X (Version None)
Quarter: 2011Q1

REPORT INFORMATION
  Report Type: 
  Country: None (occurrence: None)
  Receive Date: 20110225
  Receipt Date: 20101028
  Transmission Date: 20110831
  Serious: No
  Sender: FDA-Public Use
  Company Number: 317431

PATIENT
  Age: 64 Year
  Sex: Female
  Weight: 72.1 kg

DRUGS (1)
  1. VICTOZA [Suspect]
     Indication: TYPE 2 DIABETES MELLITUS
     Dosage: SUBCUTANEOUS
     Route: 058

REACTIONS (3)
  - MAJOR DEPRESSION [None]
  - IRRITABILITY [None]
  - MOOD SWINGS [None]
